FAERS Safety Report 14894322 (Version 1)
Quarter: 2018Q2

REPORT INFORMATION
  Report Type: Spontaneous
  Country: US (occurrence: US)
  Receive Date: 20180515
  Receipt Date: 20180515
  Transmission Date: 20180711
  Serious: No
  Sender: FDA-Public Use
  Company Number: US-ASTRAZENECA-2018SE63246

PATIENT
  Age: 75 Year
  Sex: Male
  Weight: 109 kg

DRUGS (1)
  1. NEXIUM 24HR [Suspect]
     Active Substance: ESOMEPRAZOLE MAGNESIUM
     Indication: GASTROOESOPHAGEAL REFLUX DISEASE
     Dosage: UNKNOWN
     Route: 048
     Dates: start: 20180505

REACTIONS (4)
  - Ear pruritus [Not Recovered/Not Resolved]
  - Nausea [Unknown]
  - Drug ineffective [Not Recovered/Not Resolved]
  - Wheezing [Unknown]
